FAERS Safety Report 8276596-9 (Version None)
Quarter: 2012Q2

REPORT INFORMATION
  Report Type: 
  Country: None (occurrence: None)
  Receive Date: 20120406
  Receipt Date: 20120327
  Transmission Date: 20120825
  Serious: Yes (Other)
  Sender: FDA-Public Use
  Company Number: DSA_56014_2012

PATIENT
  Age: 38 Year
  Sex: Female

DRUGS (1)
  1. METRONIDAZOLE HYDROCHLORIDE [Suspect]
     Indication: PERIODONTITIS
     Dosage: (400 MG TID ORAL)
     Route: 048
     Dates: start: 20120227

REACTIONS (2)
  - ILLUSION [None]
  - ABDOMINAL DISCOMFORT [None]
